FAERS Safety Report 10170924 (Version 1)
Quarter: 2014Q2

REPORT INFORMATION
  Report Type: Spontaneous
  Country: US (occurrence: None)
  Receive Date: 20140424
  Receipt Date: 20140424
  Transmission Date: 20141212
  Serious: Yes (Other)
  Sender: FDA-Public Use
  Company Number: 2013036778

PATIENT
  Sex: Male

DRUGS (1)
  1. RHOPHYLAC (RHO(D) IMMUNE GLOBULIN INTRAVENOUS (HUMAN)) [Suspect]
     Indication: PROPHYLAXIS AGAINST RH ISOIMMUNISATION
     Dosage: RHOPHYLAC (RHO (D) IMMUNE GLOBULINE INTRAVENOUS (HUMAN) ) RECEIVED DOSE AT 29 WEEKS (2/7) UNKNOWN)
     Route: 042
     Dates: start: 20120905, end: 20120905

REACTIONS (4)
  - Rhesus haemolytic disease of newborn [None]
  - Hyperbilirubinaemia [None]
  - Drug ineffective [None]
  - Foetal exposure during pregnancy [None]
